FAERS Safety Report 4545534-4 (Version None)
Quarter: 2005Q1

REPORT INFORMATION
  Report Type: 
  Country: None (occurrence: None)
  Receive Date: 20050105
  Receipt Date: 20041009
  Transmission Date: 20050727
  Serious: Yes (Hospitalization, Other)
  Sender: FDA-Public Use
  Company Number: ES-MERCK-0410ESP00052

PATIENT
  Age: 52 Year
  Sex: Female

DRUGS (9)
  1. VIOXX [Suspect]
     Indication: MENISCUS OPERATION
     Route: 048
     Dates: start: 19970101
  2. VIOXX [Suspect]
     Route: 048
     Dates: start: 20020901, end: 20041008
  3. VIOXX [Suspect]
     Route: 048
     Dates: start: 20020901, end: 20041008
  4. VIOXX [Suspect]
     Indication: PATELLA FRACTURE
     Route: 048
     Dates: start: 19970101
  5. VIOXX [Suspect]
     Route: 048
     Dates: start: 20020901, end: 20041008
  6. VIOXX [Suspect]
     Route: 048
     Dates: start: 20020901, end: 20041008
  7. ASPIRIN [Concomitant]
     Route: 048
  8. ALENDRONATE SODIUM [Concomitant]
     Route: 048
     Dates: start: 20020901
  9. CALCIUM (UNSPECIFIED) AND VITAMIN D (UNSPECIFIED) [Concomitant]
     Route: 048
     Dates: start: 20020901

REACTIONS (7)
  - CEREBRAL INFARCTION [None]
  - HEADACHE [None]
  - MEDICATION ERROR [None]
  - MEMORY IMPAIRMENT [None]
  - PATELLA FRACTURE [None]
  - SPEECH DISORDER [None]
  - TREATMENT NONCOMPLIANCE [None]
